FAERS Safety Report 14304991 (Version 1)
Quarter: 2017Q4

REPORT INFORMATION
  Report Type: Report from Study
  Country: JP (occurrence: JP)
  Receive Date: 20171219
  Receipt Date: 20171219
  Transmission Date: 20180321
  Serious: Yes (Other)
  Sender: FDA-Public Use
  Company Number: JP-OTSUKA-007704

PATIENT
  Age: 47 Year
  Sex: Female
  Weight: 52 kg

DRUGS (32)
  1. PROGRAF [Concomitant]
     Active Substance: TACROLIMUS\TACROLIMUS ANHYDROUS
     Indication: PRODUCT USED FOR UNKNOWN INDICATION
     Dosage: 1.5 MG, QD
     Route: 048
     Dates: start: 20080405
  2. RISPERDAL [Concomitant]
     Active Substance: RISPERIDONE
     Dosage: 5 ML, DAILY DOSE
     Route: 048
     Dates: start: 20090408, end: 20090414
  3. RISPERDAL [Concomitant]
     Active Substance: RISPERIDONE
     Dosage: 4 ML, DAILY DOSE
     Route: 048
     Dates: start: 20090415, end: 20090421
  4. ARIPIPRAZOLE. [Suspect]
     Active Substance: ARIPIPRAZOLE
     Indication: SCHIZOPHRENIA
     Dosage: 18 MG, QD
     Route: 048
     Dates: start: 20090309, end: 20090317
  5. DOGMATYL [Concomitant]
     Active Substance: SULPIRIDE
     Indication: SCHIZOPHRENIA
     Dosage: 100 MG, QD
     Route: 048
     Dates: start: 2008, end: 20090310
  6. TAKEPRON [Concomitant]
     Active Substance: LANSOPRAZOLE
     Indication: PRODUCT USED FOR UNKNOWN INDICATION
     Dosage: 15 MG, QD
     Route: 048
     Dates: start: 20081216
  7. WYPAX [Concomitant]
     Active Substance: LORAZEPAM
     Dosage: 1.5 MG, QD
     Route: 048
     Dates: start: 20090408, end: 20090414
  8. ARIPIPRAZOLE. [Suspect]
     Active Substance: ARIPIPRAZOLE
     Dosage: 30 MG, QD
     Route: 048
     Dates: start: 20090408, end: 20090511
  9. HIRNAMIN [Suspect]
     Active Substance: PHENOTHIAZINE
     Dosage: 50 MG, QD
     Route: 048
     Dates: start: 20090429
  10. LEVOMEPROMAZINE [Suspect]
     Active Substance: LEVOMEPROMAZINE
     Indication: SCHIZOPHRENIA
     Dosage: DOSE DECREASED;25MAR09-14APR09(21DAYS);15APR-28APR09(100MG);29APR09-(50MG)
     Route: 048
     Dates: start: 20090325
  11. CELLCEPT [Concomitant]
     Active Substance: MYCOPHENOLATE MOFETIL\MYCOPHENOLATE MOFETIL HYDROCHLORIDE
     Indication: PRODUCT USED FOR UNKNOWN INDICATION
     Dosage: 500 MG, QD
     Route: 048
     Dates: start: 20080508
  12. NATRIX [Concomitant]
     Active Substance: INDAPAMIDE
     Indication: PRODUCT USED FOR UNKNOWN INDICATION
     Dosage: 1 MG, QD
     Route: 048
     Dates: start: 20080527
  13. WYPAX [Concomitant]
     Active Substance: LORAZEPAM
     Dosage: 1 MG, QD
     Route: 048
     Dates: start: 20090415, end: 20090421
  14. RISPERDAL [Concomitant]
     Active Substance: RISPERIDONE
     Indication: SCHIZOPHRENIA
     Dosage: 4 ML, DAILY DOSE
     Route: 048
     Dates: start: 20090311, end: 20090317
  15. PYRETHIA [Concomitant]
     Active Substance: PROMETHAZINE HYDROCHLORIDE
     Indication: PROPHYLAXIS
     Dosage: 25 MG, QD
     Route: 048
     Dates: start: 20090325
  16. HIRNAMIN [Suspect]
     Active Substance: PHENOTHIAZINE
     Dosage: 100 MG, QD
     Route: 048
     Dates: start: 20090415, end: 20090428
  17. HIRNAMIN [Suspect]
     Active Substance: PHENOTHIAZINE
     Dosage: UNK
     Route: 048
  18. LULLAN JPN [Concomitant]
     Indication: SCHIZOPHRENIA
     Dosage: 8 MG, QD
     Route: 048
     Dates: start: 2008, end: 20090310
  19. ROHYPNOL NET [Concomitant]
     Indication: SCHIZOPHRENIA
     Dosage: 1 MG, QD
     Route: 048
     Dates: start: 2008, end: 20090303
  20. DEPAKENE-R JPN [Concomitant]
     Indication: SCHIZOPHRENIA
     Dosage: 800 MG, QD
     Route: 048
     Dates: start: 20090408
  21. ARIPIPRAZOLE. [Suspect]
     Active Substance: ARIPIPRAZOLE
     Indication: SCHIZOPHRENIA
     Dosage: -17MAR09:9D,18MAR-07APR09:24MG,QD,21D  08APR-11MAY09:34D,30MG,QD  FORM:POWDER
     Route: 048
     Dates: start: 20090309, end: 20090511
  22. BASEN OD [Concomitant]
     Active Substance: VOGLIBOSE
     Indication: PRODUCT USED FOR UNKNOWN INDICATION
     Dosage: 0.9 MG, QD
     Route: 048
     Dates: start: 2008
  23. WYPAX [Concomitant]
     Active Substance: LORAZEPAM
     Indication: SCHIZOPHRENIA
     Dosage: 1.5 MG, QD
     Route: 048
     Dates: start: 20090228, end: 20090317
  24. WYPAX [Concomitant]
     Active Substance: LORAZEPAM
     Dosage: 0.5 MG, QD
     Route: 048
     Dates: start: 20090422, end: 20090428
  25. FLUCONAZOLE. [Concomitant]
     Active Substance: FLUCONAZOLE
     Indication: PRODUCT USED FOR UNKNOWN INDICATION
     Dosage: UNK
     Route: 065
     Dates: start: 20080527
  26. ARIPIPRAZOLE. [Suspect]
     Active Substance: ARIPIPRAZOLE
     Dosage: 24 MG, QD
     Route: 048
     Dates: start: 20090318, end: 20090407
  27. HIRNAMIN [Suspect]
     Active Substance: PHENOTHIAZINE
     Indication: SCHIZOPHRENIA
     Dosage: 25 MG, QD
     Route: 048
     Dates: start: 20090325, end: 20090414
  28. ROHYPNOL NET [Concomitant]
     Dosage: 3 MG, QD
     Route: 048
     Dates: start: 20090304
  29. PREDONINE [Concomitant]
     Active Substance: PREDNISOLONE
     Indication: PRODUCT USED FOR UNKNOWN INDICATION
     Dosage: 2.5 MG, QD
     Route: 048
  30. WYPAX [Concomitant]
     Active Substance: LORAZEPAM
     Dosage: 3 MG, QD
     Route: 048
     Dates: start: 20090318, end: 20090407
  31. RISPERDAL [Concomitant]
     Active Substance: RISPERIDONE
     Dosage: 6 ML, DAILY DOSE
     Route: 048
     Dates: start: 20090318, end: 20090407
  32. RISPERDAL [Concomitant]
     Active Substance: RISPERIDONE
     Dosage: 2 ML, DAILY DOSE
     Route: 048
     Dates: start: 20090422

REACTIONS (5)
  - Endometrial hyperplasia [Unknown]
  - Genital haemorrhage [Not Recovered/Not Resolved]
  - Fall [Recovering/Resolving]
  - Contusion [Recovering/Resolving]
  - Blood creatine phosphokinase increased [Recovering/Resolving]

NARRATIVE: CASE EVENT DATE: 20090428
